FAERS Safety Report 13740921 (Version 1)
Quarter: 2017Q3

REPORT INFORMATION
  Report Type: Spontaneous
  Country: PL (occurrence: PL)
  Receive Date: 20170711
  Receipt Date: 20170711
  Transmission Date: 20171127
  Serious: Yes (Death)
  Sender: FDA-Public Use
  Company Number: PL-BAXTER-2017BAX025412

PATIENT
  Sex: Male
  Weight: 111.4 kg

DRUGS (2)
  1. ENDOXAN [Suspect]
     Active Substance: CYCLOPHOSPHAMIDE
     Dosage: THIRD INFUSION
     Route: 042
     Dates: start: 20160628, end: 20160628
  2. ENDOXAN [Suspect]
     Active Substance: CYCLOPHOSPHAMIDE
     Indication: NEPHROTIC SYNDROME
     Dosage: MONTH AND TWO MONTHS BEFORE, TWO INFUSIONS
     Route: 042

REACTIONS (3)
  - Sepsis [Fatal]
  - Leukopenia [Fatal]
  - Thrombocytopenia [Fatal]
